FAERS Safety Report 19933239 (Version 1)
Quarter: 2021Q4

REPORT INFORMATION
  Report Type: Spontaneous
  Country: US (occurrence: US)
  Receive Date: 20211008
  Receipt Date: 20211008
  Transmission Date: 20220303
  Serious: Yes (Other)
  Sender: FDA-Public Use
  Company Number: US-BAYER-2021A226350

PATIENT
  Age: 23 Year
  Sex: Female

DRUGS (1)
  1. KYLEENA [Suspect]
     Active Substance: LEVONORGESTREL
     Indication: Contraception
     Dosage: 17.5 ?G, CONT
     Route: 015
     Dates: start: 20210727, end: 20210727

REACTIONS (4)
  - Syncope [None]
  - Complication of device insertion [None]
  - Procedural pain [Unknown]
  - Complication of device insertion [None]

NARRATIVE: CASE EVENT DATE: 20210727
